FAERS Safety Report 5977186-0 (Version None)
Quarter: 2008Q4

REPORT INFORMATION
  Report Type: 
  Country: None (occurrence: None)
  Receive Date: 20081203
  Receipt Date: 20081125
  Transmission Date: 20090506
  Serious: Yes (Death)
  Sender: FDA-Public Use
  Company Number: US-GILEAD-2008-0019196

PATIENT
  Sex: Male

DRUGS (11)
  1. LETAIRIS [Suspect]
     Indication: PULMONARY ARTERIAL HYPERTENSION
     Route: 048
     Dates: start: 20081024
  2. REVATIO [Concomitant]
     Route: 048
  3. LEVOTHYROXINE SODIUM [Concomitant]
     Route: 048
  4. ELAVIL [Concomitant]
     Route: 048
  5. ATENOLOL [Concomitant]
     Route: 048
  6. ALLOPURINOL [Concomitant]
     Route: 048
  7. CELEBREX [Concomitant]
     Route: 048
  8. ASPIRIN [Concomitant]
     Indication: PAIN
     Route: 048
  9. ASPIRIN [Concomitant]
     Route: 048
  10. LIPITOR [Concomitant]
  11. PREDNISONE TAB [Concomitant]

REACTIONS (1)
  - DEATH [None]
